FAERS Safety Report 5800293-X (Version None)
Quarter: 2008Q3

REPORT INFORMATION
  Report Type: 
  Country: None (occurrence: None)
  Receive Date: 20080701
  Receipt Date: 20080616
  Transmission Date: 20090109
  Serious: Yes (Hospitalization)
  Sender: FDA-Public Use
  Company Number: 2008AL007108

PATIENT
  Sex: Male

DRUGS (3)
  1. DIGOXIN [Suspect]
     Dosage: 0.125MG
     Dates: start: 20080331, end: 20080428
  2. ALTACE [Concomitant]
  3. COREG [Concomitant]

REACTIONS (7)
  - CHILLS [None]
  - COUGH [None]
  - DIZZINESS [None]
  - DYSPNOEA [None]
  - MITRAL VALVE PROLAPSE [None]
  - NAUSEA [None]
  - TREMOR [None]
